FAERS Safety Report 19167600 (Version 1)
Quarter: 2021Q2

REPORT INFORMATION
  Report Type: Spontaneous
  Country: US (occurrence: US)
  Receive Date: 20210421
  Receipt Date: 20210421
  Transmission Date: 20210717
  Serious: No
  Sender: FDA-Public Use
  Company Number: None

PATIENT
  Age: 70 Year
  Sex: Female

DRUGS (1)
  1. NOURIANZ [Suspect]
     Active Substance: ISTRADEFYLLINE
     Indication: PARKINSON^S DISEASE
     Route: 048
     Dates: start: 20210219, end: 20210402

REACTIONS (3)
  - Insomnia [None]
  - Tremor [None]
  - Condition aggravated [None]

NARRATIVE: CASE EVENT DATE: 20210322
